FAERS Safety Report 9170183 (Version 4)
Quarter: 2013Q2

REPORT INFORMATION
  Report Type: Report from Study
  Country: US (occurrence: US)
  Receive Date: 20120913
  Receipt Date: 20120913
  Transmission Date: 20140414
  Serious: Yes (Other)
  Sender: FDA-Public Use
  Company Number: PHEH2012US005123

PATIENT
  Age: 45 Year
  Sex: Male

DRUGS (2)
  1. EXTAVIA [Suspect]
     Indication: MULTIPLE SCLEROSIS
     Dosage: 0.25 MG (1 ML), QOD, SUBCUTANEOUS
     Route: 058
     Dates: start: 201201
  2. TESTOSTERONE [Concomitant]
     Dosage: UNK UKN, UNK

REACTIONS (11)
  - Cognitive disorder [Recovering/Resolving]
  - Tremor [Recovering/Resolving]
  - Sensory disturbance [Recovering/Resolving]
  - Hypoaesthesia [Recovering/Resolving]
  - Paraesthesia [Recovering/Resolving]
  - Muscular weakness [Recovering/Resolving]
  - Headache [Recovering/Resolving]
  - Multiple sclerosis relapse [Recovering/Resolving]
  - Nasopharyngitis [Recovered/Resolved]
  - Injection site erythema [Recovering/Resolving]
  - Sensory disturbance [None]
